FAERS Safety Report 12204055 (Version 1)
Quarter: 2016Q1

REPORT INFORMATION
  Report Type: Spontaneous
  Country: US (occurrence: None)
  Receive Date: 20160322
  Receipt Date: 20160322
  Transmission Date: 20160526
  Serious: Yes (Death, Hospitalization, Other)
  Sender: FDA-Public Use
  Company Number: None

PATIENT
  Age: 57 Year
  Sex: Female

DRUGS (1)
  1. GADAVIST [Suspect]
     Active Substance: GADOBUTROL
     Indication: NECK MASS
     Dosage: 10 CC X1 W

REACTIONS (2)
  - Erythema [None]
  - Dyspnoea [None]

NARRATIVE: CASE EVENT DATE: 20160129
